FAERS Safety Report 5374076-1 (Version None)
Quarter: 2007Q2

REPORT INFORMATION
  Report Type: 
  Country: None (occurrence: None)
  Receive Date: 20070627
  Receipt Date: 20070612
  Transmission Date: 20071010
  Serious: Yes (Other)
  Sender: FDA-Public Use
  Company Number: 2006US-05018

PATIENT
  Age: 29 Year
  Sex: Female

DRUGS (2)
  1. ISTORETINOIN [Suspect]
     Dosage: 20 MG, QD
     Dates: start: 20061205, end: 20061213
  2. BIRTH CONTROL PILLS [Concomitant]

REACTIONS (4)
  - ABORTION INDUCED [None]
  - DRUG EXPOSURE DURING PREGNANCY [None]
  - PREGNANCY [None]
  - TREATMENT NONCOMPLIANCE [None]
